FAERS Safety Report 9555449 (Version 1)
Quarter: 2013Q3

REPORT INFORMATION
  Report Type: Spontaneous
  Country: AT (occurrence: AT)
  Receive Date: 20130926
  Receipt Date: 20130926
  Transmission Date: 20140515
  Serious: Yes (Other)
  Sender: FDA-Public Use
  Company Number: AT-JNJFOC-20130912938

PATIENT
  Age: 62 Year
  Sex: Female
  Weight: 90 kg

DRUGS (3)
  1. XARELTO [Suspect]
     Indication: KNEE ARTHROPLASTY
     Route: 048
     Dates: start: 20120106, end: 20120109
  2. PANTOLOC [Concomitant]
     Route: 065
  3. PARKEMED [Concomitant]
     Route: 065

REACTIONS (2)
  - Dyspnoea [Recovered/Resolved]
  - Lip swelling [Recovered/Resolved]
